FAERS Safety Report 10044803 (Version 1)
Quarter: 2014Q1

REPORT INFORMATION
  Report Type: Spontaneous
  Country: CA (occurrence: None)
  Receive Date: 20140326
  Receipt Date: 20140326
  Transmission Date: 20141002
  Serious: Yes (Hospitalization)
  Sender: FDA-Public Use
  Company Number: 2014P1002243

PATIENT
  Age: 71 Year
  Sex: Male
  Weight: 122 kg

DRUGS (1)
  1. TRANEXAMIC ACID [Suspect]
     Indication: HAEMORRHAGE PROPHYLAXIS
     Route: 042

REACTIONS (10)
  - Procedural haemorrhage [None]
  - Loss of consciousness [None]
  - Grand mal convulsion [None]
  - Cardiac arrest [None]
  - Lactic acidosis [None]
  - Renal impairment [None]
  - Drug level increased [None]
  - Aspiration [None]
  - Respiratory failure [None]
  - Deep vein thrombosis [None]
